FAERS Safety Report 7797092-9 (Version None)
Quarter: 2011Q4

REPORT INFORMATION
  Report Type: 
  Country: None (occurrence: None)
  Receive Date: 20111003
  Receipt Date: 20110914
  Transmission Date: 20120403
  Serious: Yes (Death, Other)
  Sender: FDA-Public Use
  Company Number: IT-ACCORD-008360

PATIENT
  Age: 76 Year
  Sex: Male

DRUGS (5)
  1. PYRIDOSTIGMINE (PYRIDOSTIGMINE) [Concomitant]
  2. GEMCITABINE [Suspect]
     Indication: NON-SMALL CELL LUNG CANCER
  3. CARBOPLATIN [Suspect]
     Indication: NON-SMALL CELL LUNG CANCER
  4. ASA (ASA) [Concomitant]
  5. LANSOPRAZOLE [Concomitant]

REACTIONS (12)
  - VIITH NERVE PARALYSIS [None]
  - WHITE BLOOD CELL COUNT DECREASED [None]
  - LEUKOPENIA [None]
  - ATTENTION DEFICIT/HYPERACTIVITY DISORDER [None]
  - GENERAL PHYSICAL HEALTH DETERIORATION [None]
  - RESPIRATORY DISORDER [None]
  - HEMIPARESIS [None]
  - OFF LABEL USE [None]
  - PROGRESSIVE MULTIFOCAL LEUKOENCEPHALOPATHY [None]
  - GRAND MAL CONVULSION [None]
  - DYSARTHRIA [None]
  - JC VIRUS INFECTION [None]
